FAERS Safety Report 7216528-5 (Version None)
Quarter: 2011Q1

REPORT INFORMATION
  Report Type: 
  Country: None (occurrence: None)
  Receive Date: 20110107
  Receipt Date: 20101230
  Transmission Date: 20110831
  Serious: Yes (Other)
  Sender: FDA-Public Use
  Company Number: GB-AMGEN-GBRSP2010009940

PATIENT

DRUGS (10)
  1. CYCLOSPORINE [Concomitant]
  2. CANDESARTAN [Concomitant]
  3. CALCIDEN [Concomitant]
  4. OMEPRAZOLE [Concomitant]
  5. TRAMADOL [Concomitant]
  6. DARBEPOETIN ALFA [Suspect]
     Dosage: 100 A?G, UNK
  7. ATENOLOL [Concomitant]
  8. PREDNISONE [Concomitant]
  9. ALFACALCIDOL [Concomitant]
  10. DARBEPOETIN ALFA [Suspect]
     Indication: PRODUCT USED FOR UNKNOWN INDICATION
     Dosage: 100 A?G, QWK
     Route: 058
     Dates: start: 20070701, end: 20101201

REACTIONS (2)
  - APLASIA PURE RED CELL [None]
  - THERAPEUTIC RESPONSE DECREASED [None]
